FAERS Safety Report 9942017 (Version 1)
Quarter: 2014Q1

REPORT INFORMATION
  Report Type: Report from Study
  Country: US (occurrence: US)
  Receive Date: 20140303
  Receipt Date: 20140303
  Transmission Date: 20141002
  Serious: No
  Sender: FDA-Public Use
  Company Number: US-ABBVIE-13P-163-1041011-00

PATIENT
  Age: 37 Year
  Sex: Female

DRUGS (12)
  1. HUMIRA [Suspect]
     Indication: SARCOIDOSIS
     Dates: start: 201211
  2. HUMIRA [Suspect]
     Indication: NEUROPATHY PERIPHERAL
  3. ADVAIR DISKUS [Concomitant]
     Indication: SARCOIDOSIS
     Dosage: 20/50 BID
  4. ALBUTEROL [Concomitant]
     Indication: SARCOIDOSIS
     Dosage: PRN 2-4 TIMES DAY
  5. MEDROL [Concomitant]
     Indication: SARCOIDOSIS
  6. MEDROL [Concomitant]
     Indication: NEUROPATHY PERIPHERAL
  7. GABAPENTIN [Concomitant]
     Indication: NEUROPATHY PERIPHERAL
  8. GABAPENTIN [Concomitant]
     Indication: SARCOIDOSIS
  9. ALENDRONATE [Concomitant]
     Indication: STEROID THERAPY
     Dosage: 70MG WEEKLY
  10. ALENDRONATE [Concomitant]
     Indication: PROPHYLAXIS
  11. VITAMIN B12 [Concomitant]
     Indication: PRODUCT USED FOR UNKNOWN INDICATION
  12. NORCO [Concomitant]
     Indication: PAIN

REACTIONS (1)
  - Influenza like illness [Not Recovered/Not Resolved]
